FAERS Safety Report 13551928 (Version 2)
Quarter: 2017Q2

REPORT INFORMATION
  Report Type: Report from Study
  Country: CA (occurrence: CA)
  Receive Date: 20170516
  Receipt Date: 20170530
  Transmission Date: 20170830
  Serious: Yes (Other)
  Sender: FDA-Public Use
  Company Number: CA-HLSUS-2017-CA-000471

PATIENT
  Age: 17 Year
  Sex: Female
  Weight: 87 kg

DRUGS (1)
  1. CLOZARIL [Suspect]
     Active Substance: CLOZAPINE
     Indication: PSYCHOTIC DISORDER
     Dosage: 100 MG TWICE A DAY
     Route: 048
     Dates: start: 20170328, end: 20170414

REACTIONS (9)
  - Tachycardia [Unknown]
  - Dyspnoea [Unknown]
  - Pyrexia [Unknown]
  - Palpitations [Unknown]
  - Infection [Unknown]
  - Neutrophil count increased [Recovered/Resolved]
  - Bacterial infection [Unknown]
  - Hypotension [Unknown]
  - White blood cell count increased [Unknown]

NARRATIVE: CASE EVENT DATE: 20140410
